FAERS Safety Report 4407085-7 (Version None)
Quarter: 2004Q3

REPORT INFORMATION
  Report Type: 
  Country: None (occurrence: None)
  Receive Date: 20040721
  Receipt Date: 20040708
  Transmission Date: 20050211
  Serious: Yes (Other)
  Sender: FDA-Public Use
  Company Number: 0104-1734

PATIENT
  Age: 62 Year
  Sex: Female
  Weight: 73.4827 kg

DRUGS (7)
  1. ADVICOR [Suspect]
     Indication: LOW DENSITY LIPOPROTEIN INCREASED
     Dosage: 2 TABLET (S) QHS PO
     Route: 048
     Dates: start: 20040619, end: 20040627
  2. ASPIRIN [Concomitant]
  3. SINGULAIR [Concomitant]
  4. ADVAIR DISKUS 100/50 [Concomitant]
  5. EVISTA [Concomitant]
  6. CELEBREX [Concomitant]
  7. ALBUTEROL [Concomitant]

REACTIONS (1)
  - DYSPNOEA [None]
